FAERS Safety Report 5693857-8 (Version None)
Quarter: 2008Q2

REPORT INFORMATION
  Report Type: 
  Country: None (occurrence: None)
  Receive Date: 20080403
  Receipt Date: 20080331
  Transmission Date: 20081010
  Serious: Yes (Hospitalization, Other)
  Sender: FDA-Public Use
  Company Number: FR-ABBOTT-08P-056-0444830-00

PATIENT
  Age: 56 Year
  Sex: Female

DRUGS (7)
  1. HUMIRA [Suspect]
     Indication: RHEUMATOID ARTHRITIS
     Route: 058
     Dates: start: 20030401
  2. HUMIRA [Suspect]
     Dates: start: 20071101
  3. HUMIRA [Suspect]
     Dates: start: 20080326
  4. SULFASALAZINE [Concomitant]
     Indication: RHEUMATOID ARTHRITIS
     Dates: start: 20030101
  5. PRAVASTATIN [Concomitant]
     Indication: DYSLIPIDAEMIA
  6. INSULIN [Concomitant]
     Indication: DIABETES MELLITUS
  7. METFORMIN HYDROCHLORIDE [Concomitant]
     Indication: DIABETES MELLITUS

REACTIONS (4)
  - BACTERIAL PYELONEPHRITIS [None]
  - DERMATITIS BULLOUS [None]
  - ESCHERICHIA SEPSIS [None]
  - URINARY TRACT INFECTION [None]
